FAERS Safety Report 8068872-X (Version None)
Quarter: 2012Q1

REPORT INFORMATION
  Report Type: 
  Country: None (occurrence: None)
  Receive Date: 20120125
  Receipt Date: 20120118
  Transmission Date: 20120608
  Serious: Yes (Hospitalization)
  Sender: FDA-Public Use
  Company Number: US-BIOGENIDEC-2012BI002214

PATIENT
  Age: 57 Year
  Sex: Female

DRUGS (4)
  1. AVONEX [Suspect]
     Indication: MULTIPLE SCLEROSIS
     Route: 030
     Dates: start: 19990701
  2. AVONEX [Suspect]
     Route: 030
     Dates: start: 20090109
  3. AVONEX [Suspect]
     Route: 030
     Dates: start: 20070808, end: 20071001
  4. MEDICATIONS (NOS) [Concomitant]

REACTIONS (2)
  - DRUG HYPERSENSITIVITY [None]
  - RENAL FAILURE [None]
